FAERS Safety Report 7702510-8 (Version None)
Quarter: 2011Q3

REPORT INFORMATION
  Report Type: 
  Country: None (occurrence: None)
  Receive Date: 20110823
  Receipt Date: 20110816
  Transmission Date: 20111222
  Serious: No
  Sender: FDA-Public Use
  Company Number: US-BIOGENIDEC-2011BI004242

PATIENT
  Sex: Female

DRUGS (1)
  1. TYSABRI [Suspect]
     Indication: MULTIPLE SCLEROSIS
     Route: 042
     Dates: start: 20071206, end: 20110413

REACTIONS (6)
  - HYPOAESTHESIA [None]
  - VISION BLURRED [None]
  - DIPLOPIA [None]
  - MUSCLE SPASMS [None]
  - DIARRHOEA [None]
  - MEMORY IMPAIRMENT [None]
